FAERS Safety Report 18096061 (Version 1)
Quarter: 2020Q3

REPORT INFORMATION
  Report Type: Spontaneous
  Country: CZ (occurrence: CZ)
  Receive Date: 20200731
  Receipt Date: 20200731
  Transmission Date: 20201103
  Serious: Yes (Other)
  Sender: FDA-Public Use
  Company Number: CZ-AUROBINDO-AUR-APL-2020-037014

PATIENT
  Age: 50 Year
  Sex: Male
  Weight: 72 kg

DRUGS (6)
  1. REPAGLINIDE ACCORD [Concomitant]
     Indication: TYPE 2 DIABETES MELLITUS
     Dosage: 1 MILLIGRAM 0.33 DAY
     Route: 065
     Dates: start: 201811, end: 201912
  2. ROSUVASTATIN. [Concomitant]
     Active Substance: ROSUVASTATIN
     Indication: HYPERLIPIDAEMIA
     Dosage: UNK
     Route: 065
     Dates: start: 201904
  3. ATORVASTATINE [Concomitant]
     Active Substance: ATORVASTATIN
     Indication: PRODUCT USED FOR UNKNOWN INDICATION
     Dosage: 20 MILLIGRAM, ONCE A DAY
     Route: 065
     Dates: start: 201912
  4. METFORMIN [Suspect]
     Active Substance: METFORMIN HYDROCHLORIDE
     Indication: TYPE 2 DIABETES MELLITUS
     Dosage: UNK
     Route: 065
     Dates: start: 2016
  5. NYSTATIN. [Concomitant]
     Active Substance: NYSTATIN
     Indication: HYPERLIPIDAEMIA
     Dosage: UNK
     Route: 065
  6. REPAGLINIDE ACCORD [Concomitant]
     Dosage: 0.5 MILLIGRAM 0.33 DAY
     Route: 065
     Dates: start: 201912

REACTIONS (2)
  - Diabetes mellitus inadequate control [Unknown]
  - Treatment noncompliance [Unknown]

NARRATIVE: CASE EVENT DATE: 201811
